FAERS Safety Report 8438026 (Version 2)
Quarter: 2013Q2

REPORT INFORMATION
  Report Type: Report from Study
  Country: JP (occurrence: JP)
  Receive Date: 20120302
  Receipt Date: 20130423
  Transmission Date: 20140414
  Serious: Yes (Other)
  Sender: FDA-Public Use
  Company Number: JP-ROCHE-1043966

PATIENT
  Sex: 0

DRUGS (6)
  1. BEVACIZUMAB [Suspect]
     Indication: COLORECTAL CANCER
     Dosage: DAY 1
     Route: 065
  2. OXALIPLATIN [Suspect]
     Indication: COLORECTAL CANCER
     Route: 065
  3. FOLINIC ACID [Suspect]
     Indication: COLORECTAL CANCER
     Route: 065
  4. 5-FU [Suspect]
     Indication: COLORECTAL CANCER
     Dosage: BOLUS
     Route: 065
  5. 5-FU [Suspect]
     Route: 065
  6. IRINOTECAN [Suspect]
     Indication: COLORECTAL CANCER
     Dosage: DAY 1
     Route: 065

REACTIONS (14)
  - Leukopenia [Unknown]
  - Neutropenia [Unknown]
  - Anaemia [Unknown]
  - Fatigue [Unknown]
  - Decreased appetite [Unknown]
  - Stomatitis [Unknown]
  - Neurotoxicity [Unknown]
  - Hypertension [Unknown]
  - Diarrhoea [Unknown]
  - Febrile neutropenia [Unknown]
  - Nausea [Unknown]
  - Vomiting [Unknown]
  - Hypersensitivity [Unknown]
  - Embolism [Unknown]
